FAERS Safety Report 6730438-9 (Version None)
Quarter: 2010Q2

REPORT INFORMATION
  Report Type: 
  Country: None (occurrence: None)
  Receive Date: 20100518
  Receipt Date: 20100513
  Transmission Date: 20101027
  Serious: Yes (Other)
  Sender: FDA-Public Use
  Company Number: B0652800A

PATIENT

DRUGS (3)
  1. AUGMENTIN '125' [Suspect]
     Indication: PROPHYLAXIS
     Dosage: 1.2G SINGLE DOSE
     Route: 042
  2. ANAESTHETIC [Concomitant]
  3. UNKNOWN DRUG [Concomitant]

REACTIONS (3)
  - ANAPHYLACTIC REACTION [None]
  - CIRCULATORY COLLAPSE [None]
  - SHOCK [None]
